FAERS Safety Report 4393565-X (Version None)
Quarter: 2004Q3

REPORT INFORMATION
  Report Type: 
  Country: None (occurrence: None)
  Receive Date: 20040701
  Receipt Date: 20040618
  Transmission Date: 20050211
  Serious: Yes (Hospitalization)
  Sender: FDA-Public Use
  Company Number: BE-JNJFOC-20040502216

PATIENT
  Age: 2 Year
  Sex: Male
  Weight: 8.9 kg

DRUGS (1)
  1. PROPULSID [Suspect]
     Indication: GASTROOESOPHAGEAL REFLUX DISEASE
     Dosage: 2.6 MG, 3 IN 1 DAY
     Dates: start: 20030113, end: 20030808

REACTIONS (1)
  - DRUG INEFFECTIVE [None]
